FAERS Safety Report 8396323-4 (Version None)
Quarter: 2012Q2

REPORT INFORMATION
  Report Type: 
  Country: None (occurrence: None)
  Receive Date: 20120530
  Receipt Date: 20120518
  Transmission Date: 20120825
  Serious: Yes (Other)
  Sender: FDA-Public Use
  Company Number: US-ELI_LILLY_AND_COMPANY-US201105001216

PATIENT
  Sex: Female

DRUGS (8)
  1. FORTEO [Suspect]
     Dosage: 20 UG, QD
  2. FORTEO [Suspect]
     Dosage: 20 UG, QD
     Route: 065
  3. COUMADIN [Concomitant]
  4. FORTEO [Suspect]
     Dosage: 20 UG, QD
  5. TYLENOL (CAPLET) [Concomitant]
  6. FORTEO [Suspect]
     Indication: OSTEOPOROSIS
     Dosage: 20 UG, QD
  7. FORTEO [Suspect]
     Dosage: 20 UG, QD
  8. FORTEO [Suspect]
     Dosage: 20 UG, QD
     Route: 065

REACTIONS (20)
  - HEADACHE [None]
  - INJECTION SITE HAEMATOMA [None]
  - BLOOD ALKALINE PHOSPHATASE ABNORMAL [None]
  - CONTUSION [None]
  - FEELING HOT [None]
  - ARTHRITIS [None]
  - PAIN IN EXTREMITY [None]
  - LIVER DISORDER [None]
  - ERYTHEMA [None]
  - DRUG INEFFECTIVE [None]
  - BACK PAIN [None]
  - OSTEOPOROSIS [None]
  - COUGH [None]
  - INJECTION SITE SWELLING [None]
  - HEARING IMPAIRED [None]
  - LIVER INJURY [None]
  - INJECTION SITE HAEMORRHAGE [None]
  - INJECTION SITE ERYTHEMA [None]
  - ARTHRALGIA [None]
  - JOINT SWELLING [None]
